FAERS Safety Report 23909484 (Version 2)
Quarter: 2024Q2

REPORT INFORMATION
  Report Type: Spontaneous
  Country: FR (occurrence: FR)
  Receive Date: 20240528
  Receipt Date: 20240610
  Transmission Date: 20240716
  Serious: Yes (Other)
  Sender: FDA-Public Use
  Company Number: FR-BAYER-2024A072882

PATIENT
  Age: 85 Year
  Sex: Male

DRUGS (3)
  1. NUBEQA [Suspect]
     Active Substance: DAROLUTAMIDE
     Indication: Prostate cancer
     Dosage: 600 MG, BID
     Dates: end: 2024
  2. NUBEQA [Suspect]
     Active Substance: DAROLUTAMIDE
     Indication: Prostate cancer
     Dosage: 300 MG
     Dates: end: 20240518
  3. GOSERELIN [Concomitant]
     Active Substance: GOSERELIN
     Dosage: UNK

REACTIONS (2)
  - Mitral valve incompetence [Recovered/Resolved]
  - Blood pressure abnormal [None]

NARRATIVE: CASE EVENT DATE: 20240510
